FAERS Safety Report 17943221 (Version 2)
Quarter: 2021Q2

REPORT INFORMATION
  Report Type: Spontaneous
  Country: US (occurrence: US)
  Receive Date: 20200625
  Receipt Date: 20210409
  Transmission Date: 20210717
  Serious: No
  Sender: FDA-Public Use
  Company Number: US-CELGENEUS-USA-20200606550

PATIENT
  Age: 59 Year
  Sex: Female

DRUGS (1)
  1. POMALYST [Suspect]
     Active Substance: POMALIDOMIDE
     Indication: PLASMA CELL MYELOMA
     Dosage: 3 MILLIGRAM
     Route: 048
     Dates: start: 20200113

REACTIONS (3)
  - Mood altered [Unknown]
  - Inappropriate schedule of product administration [Unknown]
  - Fatigue [Unknown]

NARRATIVE: CASE EVENT DATE: 20200622
